FAERS Safety Report 5747144-X (Version None)
Quarter: 2008Q2

REPORT INFORMATION
  Report Type: 
  Country: None (occurrence: None)
  Receive Date: 20080522
  Receipt Date: 20080507
  Transmission Date: 20081010
  Serious: Yes (Other)
  Sender: FDA-Public Use
  Company Number: US-MERCK-0804USA03901

PATIENT
  Age: 5 Year
  Sex: Male

DRUGS (6)
  1. SINGULAIR [Suspect]
     Indication: ASTHMA
     Route: 048
     Dates: start: 20060303, end: 20080416
  2. SINGULAIR [Suspect]
     Route: 048
     Dates: start: 20080401, end: 20080401
  3. SINGULAIR [Suspect]
     Indication: RHINITIS ALLERGIC
     Route: 048
     Dates: start: 20060303, end: 20080416
  4. SINGULAIR [Suspect]
     Route: 048
     Dates: start: 20080401, end: 20080401
  5. FLONASE [Concomitant]
     Dates: start: 20061018
  6. XOPENEX [Concomitant]
     Dates: start: 20060303

REACTIONS (1)
  - SUICIDAL IDEATION [None]
